FAERS Safety Report 6590270-6 (Version None)
Quarter: 2010Q1

REPORT INFORMATION
  Report Type: 
  Country: None (occurrence: None)
  Receive Date: 20100219
  Receipt Date: 20100209
  Transmission Date: 20100710
  Serious: Yes (Other)
  Sender: FDA-Public Use
  Company Number: PHEH2010US02357

PATIENT

DRUGS (2)
  1. RECLAST [Suspect]
     Indication: OSTEITIS DEFORMANS
     Dosage: 5 MG, UNK
     Route: 042
  2. RECLAST [Suspect]
     Indication: OSTEOPOROSIS

REACTIONS (1)
  - ACUTE MYELOID LEUKAEMIA [None]
